FAERS Safety Report 9684124 (Version 1)
Quarter: 2013Q4

REPORT INFORMATION
  Report Type: Spontaneous
  Country: US (occurrence: US)
  Receive Date: 20131112
  Receipt Date: 20131112
  Transmission Date: 20140711
  Serious: No
  Sender: FDA-Public Use
  Company Number: US-B.I. PHARMACEUTICALS,INC./RIDGEFIELD-2013-BI-35006BP

PATIENT
  Age: 76 Year
  Sex: Female

DRUGS (5)
  1. COMBIVENT [Suspect]
     Indication: CHRONIC OBSTRUCTIVE PULMONARY DISEASE
     Dosage: STRENGTH: 20 MCG / 100 MCG; DAILY DOSE: 80MCG/400MCG
     Route: 055
     Dates: start: 20131027
  2. SIMVASTATIN [Concomitant]
     Indication: BLOOD CHOLESTEROL INCREASED
     Dosage: 2.8571 MG
     Route: 048
     Dates: start: 2009
  3. BUSPAR [Concomitant]
     Indication: ANXIETY
     Dosage: 10 MG
     Route: 048
     Dates: start: 2006
  4. LOPRESSOR [Concomitant]
     Indication: HYPERTENSION
     Dosage: 50 MG
     Route: 048
     Dates: start: 1998
  5. PRILOSEC [Concomitant]
     Indication: DYSPEPSIA
     Dosage: 20 MG
     Route: 048
     Dates: start: 2008

REACTIONS (1)
  - Upper-airway cough syndrome [Not Recovered/Not Resolved]
